FAERS Safety Report 8658986 (Version 2)
Quarter: 2013Q1

REPORT INFORMATION
  Report Type: Spontaneous
  Country: JP (occurrence: JP)
  Receive Date: 20120710
  Receipt Date: 20130326
  Transmission Date: 20140127
  Serious: Yes (Other)
  Sender: FDA-Public Use
  Company Number: JP-JNJFOC-20120702394

PATIENT
  Age: 58 Year
  Sex: Male

DRUGS (2)
  1. ITRIZOLE [Suspect]
     Indication: OESOPHAGEAL CANDIDIASIS
     Route: 048
     Dates: start: 201206
  2. ITRIZOLE [Suspect]
     Indication: ORAL CANDIDIASIS
     Route: 048
     Dates: start: 201206

REACTIONS (2)
  - Thyroiditis [Recovering/Resolving]
  - Hyperthyroidism [Unknown]
